FAERS Safety Report 9394548 (Version 1)
Quarter: 2013Q3

REPORT INFORMATION
  Report Type: Report from Study
  Country: EC (occurrence: EC)
  Receive Date: 20130711
  Receipt Date: 20130711
  Transmission Date: 20140515
  Serious: Yes (Other)
  Sender: FDA-Public Use
  Company Number: PHHY2013EC073358

PATIENT
  Sex: Female

DRUGS (1)
  1. TEGRETOL CR [Suspect]
     Dosage: 400 MG, UNK
     Route: 048
     Dates: start: 20110228

REACTIONS (1)
  - Cerebrovascular accident [Unknown]
